FAERS Safety Report 8480080-7 (Version None)
Quarter: 2012Q2

REPORT INFORMATION
  Report Type: 
  Country: None (occurrence: None)
  Receive Date: 20120629
  Receipt Date: 20120622
  Transmission Date: 20120825
  Serious: Yes (Hospitalization)
  Sender: FDA-Public Use
  Company Number: US-B.I. PHARMACEUTICALS,INC./RIDGEFIELD-2012-BP-10681BP

PATIENT
  Sex: Female
  Weight: 78.47 kg

DRUGS (31)
  1. SIMVASTATIN [Concomitant]
     Dosage: 20 MG
     Route: 048
  2. VITAMIN B-12 [Concomitant]
  3. ACETAMINOPHEN [Concomitant]
  4. PRADAXA [Suspect]
     Dosage: 150 MG
     Route: 048
     Dates: start: 20110826, end: 20110830
  5. METOPROLOL SUCCINATE [Concomitant]
     Dosage: 200 MG
     Route: 048
  6. VITAMIN B-12 [Concomitant]
     Dosage: 1000 MCG
  7. MULTAQ [Concomitant]
     Dosage: 800 MG
     Route: 048
  8. MULTAQ [Concomitant]
  9. METFORMIN HCL [Concomitant]
     Dosage: 3000 MG
  10. PROTONIX [Concomitant]
  11. ASPIRIN [Concomitant]
  12. MAGNESIUM OXIDE [Concomitant]
     Dosage: 500 MG
  13. ZITHROMAX [Concomitant]
  14. PRADAXA [Suspect]
     Indication: ATRIAL FIBRILLATION
     Dosage: 300 MG
     Dates: start: 20110802, end: 20110808
  15. TOPROL-XL [Concomitant]
  16. LASIX [Concomitant]
  17. POTASSIUM CHLORIDE [Concomitant]
     Dosage: 10 MEQ
     Route: 048
  18. ZITHROMAX [Concomitant]
     Dosage: 250 MG
     Route: 048
  19. MELOXICAM [Concomitant]
     Dosage: 15 MG
     Route: 048
  20. ASCORBIC ACID [Concomitant]
     Dosage: 400 MG
  21. LASIX [Concomitant]
     Dosage: 20 MG
  22. COENZYME Q10 [Concomitant]
  23. EFFIENT [Concomitant]
     Dosage: 10 MG
  24. TRAMADOL HCL [Concomitant]
  25. ACETAMINOPHEN [Concomitant]
  26. PROTONIX [Concomitant]
     Dosage: 40 MG
     Route: 048
  27. VITAMIN D [Concomitant]
     Dosage: 4000 U
  28. GLYBURIDE [Concomitant]
     Dosage: 5 MG
  29. MAGNESIUM OXIDE [Concomitant]
  30. POTASSIUM CHLORIDE [Concomitant]
  31. ASPIRIN [Concomitant]
     Dosage: 81 MG
     Route: 048

REACTIONS (5)
  - FACIAL BONES FRACTURE [None]
  - SUBDURAL HAEMATOMA [None]
  - FALL [None]
  - GASTROINTESTINAL HAEMORRHAGE [None]
  - HAEMORRHAGE [None]
